FAERS Safety Report 6108758-0 (Version None)
Quarter: 2009Q1

REPORT INFORMATION
  Report Type: 
  Country: None (occurrence: None)
  Receive Date: 20090310
  Receipt Date: 20090303
  Transmission Date: 20090719
  Serious: No
  Sender: FDA-Public Use
  Company Number: US-JNJFOC-20090301160

PATIENT
  Sex: Male

DRUGS (9)
  1. DURAGESIC-100 [Suspect]
     Route: 062
  2. DURAGESIC-100 [Suspect]
     Route: 062
  3. DURAGESIC-100 [Suspect]
     Indication: PAIN
     Route: 062
  4. FENTANYL TRANSDERMAL SYSTEM [Suspect]
     Indication: PAIN
     Route: 062
  5. SOMA [Concomitant]
     Indication: MYALGIA
     Route: 048
  6. LYRICA [Concomitant]
     Indication: NERVE INJURY
     Route: 048
  7. VALIUM [Concomitant]
     Indication: NERVE INJURY
     Route: 048
  8. VALIUM [Concomitant]
     Indication: SLEEP DISORDER
     Dosage: AS NEEDED
     Route: 048
  9. METHADONE HCL [Concomitant]
     Indication: PAIN
     Route: 065

REACTIONS (4)
  - APPLICATION SITE EROSION [None]
  - APPLICATION SITE ERYTHEMA [None]
  - DRUG PRESCRIBING ERROR [None]
  - INAPPROPRIATE SCHEDULE OF DRUG ADMINISTRATION [None]
